FAERS Safety Report 14970324 (Version 1)
Quarter: 2018Q2

REPORT INFORMATION
  Report Type: Spontaneous
  Country: US (occurrence: US)
  Receive Date: 20180604
  Receipt Date: 20180604
  Transmission Date: 20180711
  Serious: No
  Sender: FDA-Public Use
  Company Number: US-ALLERGAN-1766557US

PATIENT
  Sex: Female

DRUGS (3)
  1. KYBELLA [Suspect]
     Active Substance: DEOXYCHOLIC ACID
     Indication: FAT TISSUE INCREASED
     Dosage: UNKNOWN, SINGLE
     Route: 058
     Dates: start: 201705, end: 201705
  2. KYBELLA [Suspect]
     Active Substance: DEOXYCHOLIC ACID
     Dosage: UNKNOWN, SINGLE
     Route: 058
     Dates: start: 201709, end: 201709
  3. KYBELLA [Suspect]
     Active Substance: DEOXYCHOLIC ACID
     Dosage: UNKNOWN, SINGLE
     Route: 058
     Dates: start: 201706, end: 201706

REACTIONS (1)
  - Drug ineffective [Unknown]
